FAERS Safety Report 14401312 (Version 9)
Quarter: 2019Q4

REPORT INFORMATION
  Report Type: Spontaneous
  Country: US (occurrence: US)
  Receive Date: 20180117
  Receipt Date: 20191121
  Transmission Date: 20200122
  Serious: No
  Sender: FDA-Public Use
  Company Number: US-PFIZER INC-2017497510

PATIENT
  Age: 17 Year
  Sex: Female
  Weight: 54 kg

DRUGS (3)
  1. XELJANZ [Suspect]
     Active Substance: TOFACITINIB CITRATE
     Indication: ALOPECIA UNIVERSALIS
     Dosage: 5 MG, 2X/DAY
     Route: 048
     Dates: start: 201712
  2. XELJANZ [Suspect]
     Active Substance: TOFACITINIB CITRATE
     Indication: ALOPECIA
  3. SPRINTEC [Concomitant]
     Active Substance: ETHINYL ESTRADIOL\NORGESTIMATE
     Indication: MENORRHAGIA
     Dosage: 1 DF, UNK, [TAKES 1 TABLET BY MOUTH A DAY FOR 28 DAYS]
     Route: 048

REACTIONS (3)
  - Product use issue [Unknown]
  - Drug effective for unapproved indication [Unknown]
  - Off label use [Unknown]

NARRATIVE: CASE EVENT DATE: 201712
